FAERS Safety Report 14266076 (Version 5)
Quarter: 2018Q1

REPORT INFORMATION
  Report Type: Spontaneous
  Country: IT (occurrence: IT)
  Receive Date: 20171209
  Receipt Date: 20180226
  Transmission Date: 20180508
  Serious: Yes (Other)
  Sender: FDA-Public Use
  Company Number: PHHY2017IT167635

PATIENT
  Age: 27 Year
  Sex: Female

DRUGS (19)
  1. RAMIPRIL. [Concomitant]
     Active Substance: RAMIPRIL
     Indication: SECONDARY HYPERTENSION
     Dosage: UNK
     Route: 065
  2. TENOFOVIR DISOPROXIL FUMARATE. [Suspect]
     Active Substance: TENOFOVIR DISOPROXIL FUMARATE
     Indication: ANTIRETROVIRAL THERAPY
     Dosage: 800 MG, QD
     Route: 065
  3. TENOFOVIR DISOPROXIL FUMARATE. [Suspect]
     Active Substance: TENOFOVIR DISOPROXIL FUMARATE
     Indication: HIV INFECTION
     Dosage: 245 MG, Q72H
     Route: 065
  4. ZIDOVUDINE. [Concomitant]
     Active Substance: ZIDOVUDINE
     Indication: PRODUCT USED FOR UNKNOWN INDICATION
     Dosage: 300 MG, QD
     Route: 065
  5. RALTEGRAVIR. [Suspect]
     Active Substance: RALTEGRAVIR
     Indication: HIV INFECTION
     Dosage: UNK
     Route: 065
  6. LAMIVUDINE. [Concomitant]
     Active Substance: LAMIVUDINE
     Indication: PRODUCT USED FOR UNKNOWN INDICATION
     Dosage: 100 MG, QD
     Route: 065
  7. LAMIVUDINE. [Concomitant]
     Active Substance: LAMIVUDINE
     Dosage: UNK
  8. TRUVADA [Suspect]
     Active Substance: EMTRICITABINE\TENOFOVIR DISOPROXIL FUMARATE
     Indication: HEPATITIS B
     Route: 065
  9. TRUVADA [Suspect]
     Active Substance: EMTRICITABINE\TENOFOVIR DISOPROXIL FUMARATE
     Indication: HIV INFECTION
  10. RITONAVIR. [Concomitant]
     Active Substance: RITONAVIR
     Indication: PRODUCT USED FOR UNKNOWN INDICATION
     Dosage: 100 MG, BID
     Route: 065
  11. RITONAVIR. [Concomitant]
     Active Substance: RITONAVIR
     Dosage: UNK
  12. DARUNAVIR [Concomitant]
     Active Substance: DARUNAVIR
     Dosage: UNK
  13. TENOFOVIR DISOPROXIL FUMARATE. [Suspect]
     Active Substance: TENOFOVIR DISOPROXIL FUMARATE
     Indication: HEPATITIS B
  14. ZIDOVUDINE. [Concomitant]
     Active Substance: ZIDOVUDINE
     Dosage: UNK
  15. TELBIVUDINE [Suspect]
     Active Substance: TELBIVUDINE
     Indication: HIV INFECTION
     Dosage: UNK
     Route: 065
  16. LAMIVUDINE AND ZIDOVUDINE [Suspect]
     Active Substance: LAMIVUDINE\ZIDOVUDINE
     Indication: HIV INFECTION
     Route: 065
  17. EFAVIRENZ. [Suspect]
     Active Substance: EFAVIRENZ
     Indication: HIV INFECTION
     Dosage: 800 MG, QD
     Route: 065
  18. RALTEGRAVIR. [Suspect]
     Active Substance: RALTEGRAVIR
     Indication: ANTIRETROVIRAL THERAPY
  19. DARUNAVIR [Concomitant]
     Active Substance: DARUNAVIR
     Indication: ANTIRETROVIRAL THERAPY
     Dosage: 600 MG, BID
     Route: 065

REACTIONS (4)
  - Pathogen resistance [Unknown]
  - Prescribed overdose [Unknown]
  - End stage renal disease [Unknown]
  - Virologic failure [Unknown]

NARRATIVE: CASE EVENT DATE: 201404
